FAERS Safety Report 17145196 (Version 2)
Quarter: 2019Q4

REPORT INFORMATION
  Report Type: Spontaneous
  Country: TR (occurrence: TR)
  Receive Date: 20191212
  Receipt Date: 20191221
  Transmission Date: 20200122
  Serious: Yes (Other)
  Sender: FDA-Public Use
  Company Number: TR-AMGEN-TURSP2019205979

PATIENT
  Age: 54 Year
  Sex: Female

DRUGS (1)
  1. ENBREL [Suspect]
     Active Substance: ETANERCEPT
     Indication: RHEUMATOID ARTHRITIS
     Dosage: 50 MILLIGRAM, WEEKLY
     Route: 065
     Dates: start: 2014, end: 20191204

REACTIONS (1)
  - Oesophageal squamous cell carcinoma [Unknown]

NARRATIVE: CASE EVENT DATE: 201906
